FAERS Safety Report 5183852-X (Version None)
Quarter: 2006Q4

REPORT INFORMATION
  Report Type: 
  Country: None (occurrence: None)
  Receive Date: 20061220
  Receipt Date: 20061215
  Transmission Date: 20070319
  Serious: Yes (Hospitalization)
  Sender: FDA-Public Use
  Company Number: IT-GLAXOSMITHKLINE-B0451191A

PATIENT
  Age: 33 Year
  Sex: Female

DRUGS (1)
  1. ZENTEL [Suspect]
     Dosage: 400MG TWICE PER DAY
     Route: 048
     Dates: start: 20061027, end: 20061027

REACTIONS (4)
  - DYSPNOEA [None]
  - ERYTHEMA [None]
  - LYMPHADENOPATHY [None]
  - PYREXIA [None]
